FAERS Safety Report 21489712 (Version 3)
Quarter: 2023Q2

REPORT INFORMATION
  Report Type: Report from Study
  Country: US (occurrence: US)
  Receive Date: 20221021
  Receipt Date: 20230426
  Transmission Date: 20230721
  Serious: No
  Sender: FDA-Public Use
  Company Number: US-ABBVIE-4148072

PATIENT
  Age: 50 Year
  Sex: Male

DRUGS (4)
  1. HUMIRA [Suspect]
     Active Substance: ADALIMUMAB
     Indication: Hidradenitis
     Dosage: STRENGTH: 40MG
     Route: 058
  2. HUMIRA [Suspect]
     Active Substance: ADALIMUMAB
     Route: 058
     Dates: start: 20220503
  3. PFIZER-BIONTECH COVID-19 VACCINE [Concomitant]
     Active Substance: TOZINAMERAN
     Indication: COVID-19 immunisation
     Dosage: FIRST DOSE?FREQUENCY 1-1-ONCE
     Route: 030
     Dates: start: 20210504, end: 20210504
  4. PFIZER-BIONTECH COVID-19 VACCINE [Concomitant]
     Active Substance: TOZINAMERAN
     Indication: COVID-19 immunisation
     Dosage: SECOND DOSE?FREQUENCY 1-1-ONCE
     Route: 030
     Dates: start: 20210601, end: 20210601

REACTIONS (6)
  - Irritability [Not Recovered/Not Resolved]
  - Injection site haemorrhage [Unknown]
  - Fatigue [Unknown]
  - Pain in extremity [Unknown]
  - Hyperhidrosis [Unknown]
  - Hidradenitis [Unknown]

NARRATIVE: CASE EVENT DATE: 20230313
